FAERS Safety Report 7913812-4 (Version None)
Quarter: 2011Q4

REPORT INFORMATION
  Report Type: 
  Country: None (occurrence: None)
  Receive Date: 20111115
  Receipt Date: 20111109
  Transmission Date: 20120403
  Serious: Yes (Death)
  Sender: FDA-Public Use
  Company Number: IE-AMGEN-IRLSP2011041493

PATIENT
  Sex: Female

DRUGS (2)
  1. CARBOPLATIN ABIC [Concomitant]
     Indication: ENDOMETRIAL CANCER
     Dosage: UNK
     Dates: start: 20100408, end: 20100813
  2. NEULASTA [Suspect]
     Indication: CHEMOTHERAPY
     Dosage: 6 MG, Q3WK
     Route: 058
     Dates: start: 20100408, end: 20100813

REACTIONS (1)
  - DISEASE PROGRESSION [None]
